FAERS Safety Report 16750315 (Version 2)
Quarter: 2019Q4

REPORT INFORMATION
  Report Type: Spontaneous
  Country: CN (occurrence: CN)
  Receive Date: 20190828
  Receipt Date: 20191127
  Transmission Date: 20200122
  Serious: Yes (Hospitalization)
  Sender: FDA-Public Use
  Company Number: CN-ASTRAZENECA-2019SF21084

PATIENT
  Age: 5062 Day
  Sex: Female
  Weight: 44 kg

DRUGS (3)
  1. SEROQUEL [Suspect]
     Active Substance: QUETIAPINE FUMARATE
     Indication: ACUTE PSYCHOSIS
     Route: 048
     Dates: end: 20190807
  2. HALOPERIDOL. [Suspect]
     Active Substance: HALOPERIDOL
     Indication: ACUTE PSYCHOSIS
     Route: 030
     Dates: start: 20190801, end: 20190804
  3. SEROQUEL [Suspect]
     Active Substance: QUETIAPINE FUMARATE
     Indication: ACUTE PSYCHOSIS
     Dosage: 150 MG EVERY NIGHT FROM 5-AUG-2019 TO 6-AUG-2019, 100 MG, EVERY MIDDAY FROM 5-AUG-2019 TO 6-AUG-2...
     Route: 048
     Dates: start: 20190805, end: 20190806

REACTIONS (1)
  - Rash [Recovered/Resolved]

NARRATIVE: CASE EVENT DATE: 20190806
